FAERS Safety Report 10191082 (Version 1)
Quarter: 2014Q2

REPORT INFORMATION
  Report Type: Spontaneous
  Country: US (occurrence: US)
  Receive Date: 20140523
  Receipt Date: 20140523
  Transmission Date: 20141212
  Serious: No
  Sender: FDA-Public Use
  Company Number: US-009507513-1405USA007305

PATIENT
  Sex: Female

DRUGS (2)
  1. JANUMET [Suspect]
     Dosage: UNK
     Route: 048
  2. LIPITOR [Suspect]
     Dosage: UNK

REACTIONS (3)
  - Weight decreased [Unknown]
  - Tongue blistering [Unknown]
  - Glossodynia [Unknown]
